FAERS Safety Report 11922842 (Version 2)
Quarter: 2019Q3

REPORT INFORMATION
  Report Type: Spontaneous
  Country: FR (occurrence: FR)
  Receive Date: 20160116
  Receipt Date: 20190817
  Transmission Date: 20191004
  Serious: Yes (Hospitalization, Other)
  Sender: FDA-Public Use
  Company Number: FR-ZYDUS-009511

PATIENT
  Age: 80 Year
  Sex: Female

DRUGS (10)
  1. OMEPRAZOLE. [Suspect]
     Active Substance: OMEPRAZOLE
     Indication: PROPHYLAXIS
  2. BORTEZOMIB. [Suspect]
     Active Substance: BORTEZOMIB
     Indication: PLASMA CELL MYELOMA
  3. COTRIMOXAZOLE [Interacting]
     Active Substance: SULFAMETHOXAZOLE\TRIMETHOPRIM
  4. VALACICLOVIR [Concomitant]
     Active Substance: VALACYCLOVIR HYDROCHLORIDE
  5. ATORVASTATIN [Interacting]
     Active Substance: ATORVASTATIN
     Indication: HYPERCHOLESTEROLAEMIA
  6. CANDESARTAN. [Interacting]
     Active Substance: CANDESARTAN
     Indication: PRODUCT USED FOR UNKNOWN INDICATION
  7. MELPHALAN. [Interacting]
     Active Substance: MELPHALAN
     Indication: PLASMA CELL MYELOMA
  8. PREDNISONE. [Concomitant]
     Active Substance: PREDNISONE
     Indication: PLASMA CELL MYELOMA
  9. SOTALOL. [Concomitant]
     Active Substance: SOTALOL
  10. FOLINIC ACID [Concomitant]
     Active Substance: LEUCOVORIN

REACTIONS (15)
  - Hyponatraemia [Unknown]
  - Pancytopenia [Unknown]
  - Vomiting [Unknown]
  - Hypotension [Unknown]
  - Septic shock [Unknown]
  - Muscular weakness [Unknown]
  - Drug interaction [Unknown]
  - Renal failure [Unknown]
  - Hyperkalaemia [Unknown]
  - Somnolence [Unknown]
  - Confusional state [Unknown]
  - Diarrhoea [Unknown]
  - Sepsis [Unknown]
  - Altered state of consciousness [Unknown]
  - Polyneuropathy [Unknown]
